FAERS Safety Report 13405212 (Version 2)
Quarter: 2017Q2

REPORT INFORMATION
  Report Type: Spontaneous
  Country: US (occurrence: US)
  Receive Date: 20170405
  Receipt Date: 20170412
  Transmission Date: 20170830
  Serious: Yes (Other)
  Sender: FDA-Public Use
  Company Number: US-VERICEL CORPORATION-VCEL-2017-000323

PATIENT

DRUGS (1)
  1. CARTICEL [Suspect]
     Active Substance: AUTOLOGOUS CULTURED CHONDROCYTES
     Indication: CARTILAGE INJURY
     Dosage: UNK

REACTIONS (1)
  - Transplant failure [Unknown]
